FAERS Safety Report 19999322 (Version 1)
Quarter: 2021Q4

REPORT INFORMATION
  Report Type: Spontaneous
  Country: US (occurrence: US)
  Receive Date: 20211026
  Receipt Date: 20211026
  Transmission Date: 20220303
  Serious: Yes (Other)
  Sender: FDA-Public Use
  Company Number: US-GLAXOSMITHKLINE-USCH2021074314

PATIENT
  Sex: Female

DRUGS (2)
  1. EQUATE NICOTINE [Suspect]
     Active Substance: NICOTINE
     Indication: Product used for unknown indication
     Dosage: UNK
  2. EQUATE NICOTINE [Suspect]
     Active Substance: NICOTINE
     Indication: Product used for unknown indication
     Dosage: UNK

REACTIONS (3)
  - Seizure [Unknown]
  - Respiratory arrest [Unknown]
  - Pruritus [Unknown]
